APPROVED DRUG PRODUCT: POSFREA
Active Ingredient: PALONOSETRON HYDROCHLORIDE
Strength: EQ 0.075MG BASE/1.5ML (EQ 0.05MG BASE/ML)
Dosage Form/Route: SOLUTION;INTRAVENOUS
Application: N203050 | Product #001
Applicant: AVYXA HOLDINGS LLC
Approved: Mar 1, 2016 | RLD: Yes | RS: No | Type: DISCN